FAERS Safety Report 5649156-3 (Version None)
Quarter: 2008Q1

REPORT INFORMATION
  Report Type: 
  Country: None (occurrence: None)
  Receive Date: 20080304
  Receipt Date: 20080226
  Transmission Date: 20080703
  Serious: No
  Sender: FDA-Public Use
  Company Number: US-BAXTER-2008BH001799

PATIENT
  Age: 9 Day
  Sex: Male

DRUGS (2)
  1. HEPARIN SODIUM [Suspect]
     Indication: PARENTERAL NUTRITION
     Dosage: DOSE UNIT:UNKNOWN
     Route: 042
     Dates: start: 20080220, end: 20080221
  2. AMINO ACIDS NOS [Suspect]
     Indication: PARENTERAL NUTRITION
     Dosage: DOSE UNIT:UNKNOWN
     Route: 042
     Dates: start: 20080220, end: 20080221

REACTIONS (1)
  - BLOOD GLUCOSE INCREASED [None]
